FAERS Safety Report 7959106-2 (Version None)
Quarter: 2011Q4

REPORT INFORMATION
  Report Type: 
  Country: None (occurrence: None)
  Receive Date: 20111206
  Receipt Date: 20111206
  Transmission Date: 20120403
  Serious: Yes (Other)
  Sender: FDA-Public Use
  Company Number: None

PATIENT
  Sex: Male

DRUGS (1)
  1. PHENYTOIN [Suspect]
     Indication: EPILEPSY
     Dosage: 300 MG
     Route: 048
     Dates: start: 20110930, end: 20111205

REACTIONS (2)
  - PRODUCT SUBSTITUTION ISSUE [None]
  - CONVULSION [None]
